FAERS Safety Report 15413381 (Version 1)
Quarter: 2018Q3

REPORT INFORMATION
  Report Type: Report from Study
  Country: US (occurrence: US)
  Receive Date: 20180921
  Receipt Date: 20180921
  Transmission Date: 20181010
  Serious: Yes (Hospitalization)
  Sender: FDA-Public Use
  Company Number: US-EISAI MEDICAL RESEARCH-EC-2018-039582

PATIENT
  Age: 52 Year
  Sex: Male
  Weight: 104.3 kg

DRUGS (17)
  1. ZOFRAN [Concomitant]
     Active Substance: ONDANSETRON HYDROCHLORIDE
  2. HYDROCORTISONE?ALOE 1 % [Concomitant]
  3. CLINDAMYCIN. [Concomitant]
     Active Substance: CLINDAMYCIN
  4. LOPRESSOR [Concomitant]
     Active Substance: METOPROLOL TARTRATE
  5. DIAZEPAM. [Concomitant]
     Active Substance: DIAZEPAM
  6. LABETALOL [Concomitant]
     Active Substance: LABETALOL\LABETALOL HYDROCHLORIDE
  7. BIOTENE NOS [Concomitant]
     Active Substance: CETYLPYRIDINIUM CHLORIDE OR SODIUM FLUORIDE OR SODIUM MONOFLUOROPHOSPHATE OR GLUCOSE OXIDASE\LACTOFERRIN\LACTOPEROXIDASE BOVINE\LYSOZYME
  8. DECADRON [Concomitant]
     Active Substance: DEXAMETHASONE
  9. OXYCODONE?ACETAMINOPHEN [Concomitant]
     Active Substance: ACETAMINOPHEN\OXYCODONE HYDROCHLORIDE
  10. AFINITOR [Concomitant]
     Active Substance: EVEROLIMUS
  11. IRON [Concomitant]
     Active Substance: IRON
  12. ALLOPURINOL. [Concomitant]
     Active Substance: ALLOPURINOL
  13. CLONIDINE. [Concomitant]
     Active Substance: CLONIDINE
  14. LENVIMA [Suspect]
     Active Substance: LENVATINIB
     Indication: RENAL CANCER
     Route: 048
     Dates: start: 20180421
  15. PROTONIX [Concomitant]
     Active Substance: PANTOPRAZOLE SODIUM
  16. SYNTHROID [Concomitant]
     Active Substance: LEVOTHYROXINE SODIUM
  17. LEXAPRO [Concomitant]
     Active Substance: ESCITALOPRAM OXALATE

REACTIONS (9)
  - Back pain [Not Recovered/Not Resolved]
  - Cholecystitis [Unknown]
  - Dry mouth [Unknown]
  - Blood pressure increased [Not Recovered/Not Resolved]
  - Tooth abscess [Unknown]
  - Nerve compression [Unknown]
  - Tumour pain [Recovered/Resolved]
  - Tongue discomfort [Unknown]
  - Gout [Not Recovered/Not Resolved]

NARRATIVE: CASE EVENT DATE: 2018
